FAERS Safety Report 6899287-5 (Version None)
Quarter: 2010Q3

REPORT INFORMATION
  Report Type: 
  Country: None (occurrence: None)
  Receive Date: 20100802
  Receipt Date: 20080416
  Transmission Date: 20110219
  Serious: No
  Sender: FDA-Public Use
  Company Number: US-PFIZER INC-2007105543

PATIENT
  Age: 54 Year
  Sex: Female

DRUGS (3)
  1. LYRICA [Suspect]
     Indication: FIBROMYALGIA
     Route: 048
     Dates: start: 20071011
  2. ULTRAM [Concomitant]
  3. CYMBALTA [Concomitant]

REACTIONS (3)
  - CONFUSIONAL STATE [None]
  - DIZZINESS [None]
  - VISUAL IMPAIRMENT [None]
